FAERS Safety Report 17419496 (Version 1)
Quarter: 2020Q1

REPORT INFORMATION
  Report Type: Spontaneous
  Country: US (occurrence: US)
  Receive Date: 20200130
  Receipt Date: 20200130
  Transmission Date: 20200409
  Serious: Yes (Hospitalization)
  Sender: FDA-Public Use
  Company Number: None

PATIENT
  Age: 71 Year
  Sex: Male

DRUGS (2)
  1. DEXAMETHASONE. [Suspect]
     Active Substance: DEXAMETHASONE
     Indication: NON-SMALL CELL LUNG CANCER
     Route: 048
     Dates: start: 20190925
  2. PREDNISONE. [Suspect]
     Active Substance: PREDNISONE
     Indication: NON-SMALL CELL LUNG CANCER
     Route: 048
     Dates: start: 20190925

REACTIONS (3)
  - Diabetes mellitus [None]
  - Hyperglycaemia [None]
  - Glycosylated haemoglobin increased [None]

NARRATIVE: CASE EVENT DATE: 20190925
